FAERS Safety Report 8592046-7 (Version None)
Quarter: 2012Q3

REPORT INFORMATION
  Report Type: 
  Country: None (occurrence: None)
  Receive Date: 20120814
  Receipt Date: 20120731
  Transmission Date: 20120928
  Serious: Yes (Death, Other)
  Sender: FDA-Public Use
  Company Number: BE-ASTELLAS-2012EU005682

PATIENT
  Age: 45 Year
  Sex: Male

DRUGS (3)
  1. PROGRAF [Suspect]
     Indication: CHRONIC GRAFT VERSUS HOST DISEASE
     Dosage: UNK
     Route: 065
     Dates: start: 20061016
  2. IMURAN [Concomitant]
     Indication: CHRONIC GRAFT VERSUS HOST DISEASE
     Dosage: UNK
     Route: 065
     Dates: start: 20061016
  3. MEDROL [Concomitant]
     Indication: CHRONIC GRAFT VERSUS HOST DISEASE
     Dosage: UNK
     Route: 065
     Dates: start: 20061016

REACTIONS (11)
  - PNEUMOCYSTIS JIROVECI PNEUMONIA [None]
  - LEUKOPENIA [None]
  - OFF LABEL USE [None]
  - DISSEMINATED INTRAVASCULAR COAGULATION [None]
  - RENAL FAILURE ACUTE [None]
  - TOXICITY TO VARIOUS AGENTS [None]
  - RESPIRATORY FAILURE [None]
  - THROMBOCYTOPENIA [None]
  - GRAFT VERSUS HOST DISEASE [None]
  - BRONCHOPULMONARY ASPERGILLOSIS [None]
  - GASTRIC ULCER [None]
